FAERS Safety Report 9335631 (Version 2)
Quarter: 2013Q2

REPORT INFORMATION
  Report Type: Spontaneous
  Country: DE (occurrence: DE)
  Receive Date: 20130607
  Receipt Date: 20130628
  Transmission Date: 20140414
  Serious: Yes (Death, Life-Threatening, Hospitalization)
  Sender: FDA-Public Use
  Company Number: DE-B.I. PHARMACEUTICALS,INC./RIDGEFIELD-2013-DE-01525DE

PATIENT
  Sex: Male

DRUGS (4)
  1. PRADAXA [Suspect]
     Indication: ATRIAL FIBRILLATION
     Dosage: 220 MG
  2. TAZOBAC [Concomitant]
  3. DABIGATRAN [Concomitant]
     Indication: ATRIAL FIBRILLATION
     Route: 048
  4. DABIGATRAN [Concomitant]
     Indication: ARRHYTHMIA SUPRAVENTRICULAR

REACTIONS (4)
  - Haemorrhage [Fatal]
  - Septic shock [Unknown]
  - Renal failure [Unknown]
  - Overdose [Unknown]
